FAERS Safety Report 17489968 (Version 1)
Quarter: 2020Q1

REPORT INFORMATION
  Report Type: Spontaneous
  Country: US (occurrence: US)
  Receive Date: 20200303
  Receipt Date: 20200303
  Transmission Date: 20200409
  Serious: No
  Sender: FDA-Public Use
  Company Number: US-AKORN PHARMACEUTICALS-2019AKN02238

PATIENT
  Sex: Male
  Weight: 99.77 kg

DRUGS (6)
  1. MYORISAN [Suspect]
     Active Substance: ISOTRETINOIN
     Indication: ACNE
     Dosage: 25 MG, 2X/DAY
     Dates: start: 20190530, end: 201906
  2. CREATINE [Concomitant]
     Active Substance: CREATINE
  3. MYORISAN [Suspect]
     Active Substance: ISOTRETINOIN
     Indication: ACNE
     Dosage: 25 MG, 2X/DAY
     Dates: start: 20190530, end: 201906
  4. MYORISAN [Suspect]
     Active Substance: ISOTRETINOIN
     Dosage: 20 MG, 2X/DAY (TOTAL DOSE 50 MG)
     Dates: start: 201906, end: 201908
  5. PROTEIN SUPPLEMENT [Concomitant]
     Active Substance: PROTEIN
  6. MYORISAN [Suspect]
     Active Substance: ISOTRETINOIN
     Dosage: 30 MG, 2X/DAY (TOTAL DOSE 50 MG)
     Dates: start: 201906, end: 201908

REACTIONS (5)
  - Low density lipoprotein increased [Recovered/Resolved]
  - Impaired healing [Recovered/Resolved]
  - Blood cholesterol increased [Recovered/Resolved]
  - Liver function test increased [Recovered/Resolved]
  - Skin fragility [Recovered/Resolved]

NARRATIVE: CASE EVENT DATE: 2019
